FAERS Safety Report 8561773-X (Version None)
Quarter: 2012Q3

REPORT INFORMATION
  Report Type: 
  Country: None (occurrence: None)
  Receive Date: 20120802
  Receipt Date: 20120726
  Transmission Date: 20120928
  Serious: Yes (Life-Threatening, Hospitalization)
  Sender: FDA-Public Use
  Company Number: JP-GILEAD-2011-0037861

PATIENT
  Sex: Male

DRUGS (12)
  1. TRUVADA [Suspect]
     Indication: HIV INFECTION
     Dosage: 1 DF, QD
     Route: 048
     Dates: start: 20100108
  2. TRUVADA [Suspect]
     Dosage: 1 DF, QD
     Route: 048
     Dates: start: 20100816
  3. PREZISTA [Suspect]
     Indication: HIV INFECTION
     Dosage: 800 MG, QD
     Route: 048
     Dates: start: 20100108, end: 20100121
  4. EFAVIRENZ [Concomitant]
     Indication: HIV INFECTION
     Route: 048
     Dates: start: 20100128, end: 20100207
  5. ISENTRESS [Concomitant]
     Dosage: UNK
     Dates: start: 20100208
  6. NORVIR [Suspect]
     Indication: HIV INFECTION
     Dosage: 100 MG, QD
     Route: 048
     Dates: start: 20100108, end: 20100121
  7. BETAMETHASONE [Suspect]
     Indication: RASH
     Dosage: 1 DF, TID
     Route: 048
     Dates: start: 20100118, end: 20100126
  8. EPIVIR [Concomitant]
     Indication: HIV INFECTION
     Route: 048
     Dates: start: 20100128, end: 20100207
  9. TRUVADA [Suspect]
     Dosage: 1 DF, QD
     Route: 048
     Dates: start: 20100208, end: 20120630
  10. ZERIT [Concomitant]
     Indication: HIV INFECTION
     Route: 048
     Dates: start: 20100128, end: 20100207
  11. LOPERAMIDE HYDROCHLORIDE [Concomitant]
     Dates: start: 20100108, end: 20100127
  12. BETAMETHASONE [Suspect]
     Dosage: 1 DF, TID
     Route: 048
     Dates: start: 20100127, end: 20100131

REACTIONS (5)
  - SALMONELLA SEPSIS [None]
  - HEPATIC FUNCTION ABNORMAL [None]
  - CASTLEMAN'S DISEASE [None]
  - RASH [None]
  - PLATELET COUNT DECREASED [None]
